FAERS Safety Report 9971151 (Version 1)
Quarter: 2014Q1

REPORT INFORMATION
  Report Type: Spontaneous
  Country: US (occurrence: None)
  Receive Date: 20140305
  Receipt Date: 20140305
  Transmission Date: 20141002
  Serious: Yes (Life-Threatening, Hospitalization, Disabling, Other)
  Sender: FDA-Public Use
  Company Number: None

PATIENT
  Age: 66 Year
  Sex: Male
  Weight: 131.54 kg

DRUGS (1)
  1. TESTIM [Suspect]
     Indication: MUSCLE BUILDING THERAPY
     Dosage: APPLIED TO A SURFACE, USUALLY THE SKIN
     Dates: start: 20120815, end: 20130213

REACTIONS (5)
  - Deep vein thrombosis [None]
  - Pulmonary embolism [None]
  - Loss of consciousness [None]
  - Laceration [None]
  - Wound haemorrhage [None]
